FAERS Safety Report 11547573 (Version 3)
Quarter: 2016Q1

REPORT INFORMATION
  Report Type: Report from Study
  Country: CA (occurrence: CA)
  Receive Date: 20150924
  Receipt Date: 20160126
  Transmission Date: 20160525
  Serious: Yes (Other)
  Sender: FDA-Public Use
  Company Number: CA-ABBVIE-15K-028-1451579-00

PATIENT
  Sex: Male
  Weight: 86.26 kg

DRUGS (2)
  1. HUMIRA [Suspect]
     Active Substance: ADALIMUMAB
     Indication: CROHN^S DISEASE
     Route: 058
     Dates: start: 20140117
  2. HUMIRA [Suspect]
     Active Substance: ADALIMUMAB
     Indication: POUCHITIS

REACTIONS (14)
  - Road traffic accident [Unknown]
  - Tendon rupture [Unknown]
  - Malaise [Not Recovered/Not Resolved]
  - Activities of daily living impaired [Not Recovered/Not Resolved]
  - Nerve injury [Recovering/Resolving]
  - Neuropathy peripheral [Not Recovered/Not Resolved]
  - Upper limb fracture [Unknown]
  - Crohn^s disease [Not Recovered/Not Resolved]
  - Soft tissue injury [Not Recovered/Not Resolved]
  - Drug effect decreased [Not Recovered/Not Resolved]
  - Inappropriate schedule of drug administration [Unknown]
  - Injury [Recovering/Resolving]
  - Intervertebral disc protrusion [Unknown]
  - Rotator cuff syndrome [Unknown]
